FAERS Safety Report 9406941 (Version 1)
Quarter: 2013Q3

REPORT INFORMATION
  Report Type: Spontaneous
  Country: US (occurrence: US)
  Receive Date: 20130718
  Receipt Date: 20130718
  Transmission Date: 20140515
  Serious: No
  Sender: FDA-Public Use
  Company Number: US-PFIZER INC-2013208025

PATIENT
  Age: 55 Year
  Sex: Female
  Weight: 90.7 kg

DRUGS (7)
  1. NEURONTIN [Suspect]
     Indication: OSTEOARTHRITIS
     Dosage: 600 MG, 3X/DAY
     Route: 048
     Dates: start: 2005
  2. NEURONTIN [Suspect]
     Indication: PAIN
  3. ZOLOFT [Suspect]
     Indication: DEPRESSION
     Dosage: 100 MG, 1X/DAY
     Route: 048
     Dates: start: 2007
  4. MELOXICAM [Concomitant]
     Dosage: UNK
  5. PANTOPRAZOLE [Concomitant]
     Dosage: UNK
  6. LISINOPRIL [Concomitant]
     Indication: HYPERTENSION
     Dosage: UNK
  7. TRAMADOL [Concomitant]
     Dosage: UNK

REACTIONS (1)
  - Fibromyalgia [Unknown]
